FAERS Safety Report 14268211 (Version 1)
Quarter: 2017Q4

REPORT INFORMATION
  Report Type: Spontaneous
  Country: US (occurrence: US)
  Receive Date: 20171211
  Receipt Date: 20171211
  Transmission Date: 20180321
  Serious: No
  Sender: FDA-Public Use
  Company Number: None

PATIENT
  Age: 62 Year
  Sex: Male
  Weight: 90 kg

DRUGS (11)
  1. WELLBUTRIN [Suspect]
     Active Substance: BUPROPION HYDROCHLORIDE
     Indication: IRRITABLE BOWEL SYNDROME
     Dosage: ?          QUANTITY:60 TABLET(S);?
     Route: 067
  2. WELLBUTRIN [Suspect]
     Active Substance: BUPROPION HYDROCHLORIDE
     Indication: DEPRESSION
     Dosage: ?          QUANTITY:60 TABLET(S);?
     Route: 067
  3. ZYRTEC [Concomitant]
     Active Substance: CETIRIZINE HYDROCHLORIDE
  4. TESTOSTERONE. [Concomitant]
     Active Substance: TESTOSTERONE
  5. PSYLLIUM HUSK FIBER [Concomitant]
  6. PYGEUM RED YEAST RICE [Concomitant]
  7. ZUBSOLV [Concomitant]
     Active Substance: BUPRENORPHINE HYDROCHLORIDE\NALOXONE HYDROCHLORIDE
  8. CHOLESTEROL [Concomitant]
     Active Substance: CHOLESTEROL
  9. PRISTIQ EXTENDED-RELEASE [Concomitant]
     Active Substance: DESVENLAFAXINE SUCCINATE
  10. IBUPROPHEN [Concomitant]
     Active Substance: IBUPROFEN
  11. TURMERIC [Concomitant]
     Active Substance: HERBALS\TURMERIC

REACTIONS (2)
  - Withdrawal syndrome [None]
  - Product quality issue [None]

NARRATIVE: CASE EVENT DATE: 20171101
